FAERS Safety Report 6781407-4 (Version None)
Quarter: 2010Q2

REPORT INFORMATION
  Report Type: 
  Country: None (occurrence: None)
  Receive Date: 20100621
  Receipt Date: 20100403
  Transmission Date: 20101027
  Serious: No
  Sender: FDA-Public Use
  Company Number: US-AMGEN-KDL403583

PATIENT
  Sex: Female

DRUGS (6)
  1. ARANESP [Suspect]
     Indication: DIALYSIS
  2. SEVELAMER [Concomitant]
  3. NEPHRO-VITE [Concomitant]
  4. ATENOLOL [Concomitant]
  5. LOVAZA [Concomitant]
  6. ZINC [Concomitant]

REACTIONS (2)
  - ALOPECIA [None]
  - STRESS [None]
